FAERS Safety Report 18795045 (Version 2)
Quarter: 2021Q1

REPORT INFORMATION
  Report Type: Spontaneous
  Country: US (occurrence: US)
  Receive Date: 20210127
  Receipt Date: 20210205
  Transmission Date: 20210419
  Serious: Yes (Other)
  Sender: FDA-Public Use
  Company Number: US-AMGEN-USASP2021009903

PATIENT
  Sex: Female

DRUGS (2)
  1. PROLIA [Suspect]
     Active Substance: DENOSUMAB
     Indication: OSTEOPOROSIS
     Dosage: 60 MILLIGRAM, Q6MO
     Route: 065
  2. TYMLOS [Concomitant]
     Active Substance: ABALOPARATIDE
     Dosage: UNK

REACTIONS (2)
  - Spinal compression fracture [Unknown]
  - Bone scan abnormal [Unknown]

NARRATIVE: CASE EVENT DATE: 2020
